FAERS Safety Report 15009445 (Version 2)
Quarter: 2018Q3

REPORT INFORMATION
  Report Type: Spontaneous
  Country: US (occurrence: US)
  Receive Date: 20180614
  Receipt Date: 20180726
  Transmission Date: 20181010
  Serious: Yes (Hospitalization)
  Sender: FDA-Public Use
  Company Number: US-VIFOR (INTERNATIONAL) INC.-VIT-2018-05752

PATIENT
  Age: 55 Year
  Sex: Male
  Weight: 108.96 kg

DRUGS (12)
  1. PROCRIT 20000 MDV [Concomitant]
  2. MINOXIDIL. [Concomitant]
     Active Substance: MINOXIDIL
  3. HYDROCHLOROTHIAZIDE~~LISINOPRIL [Concomitant]
  4. PROFERRIN ES [Concomitant]
  5. DULERA [Concomitant]
     Active Substance: FORMOTEROL FUMARATE DIHYDRATE\MOMETASONE FUROATE
  6. THEOPHYLLINE [Concomitant]
     Active Substance: THEOPHYLLINE ANHYDROUS
     Dosage: 1X4
  7. METOPROLOL TARTRATE. [Concomitant]
     Active Substance: METOPROLOL TARTRATE
  8. SPIRONOLACTONE. [Concomitant]
     Active Substance: SPIRONOLACTONE
  9. VELTASSA [Suspect]
     Active Substance: PATIROMER
     Indication: HYPERKALAEMIA
     Route: 048
     Dates: start: 20180412
  10. VELTASSA [Suspect]
     Active Substance: PATIROMER
     Dates: start: 201801
  11. PROCRIT [Concomitant]
     Active Substance: ERYTHROPOIETIN
  12. NIFEDIPINE. [Concomitant]
     Active Substance: NIFEDIPINE

REACTIONS (2)
  - Renal disorder [Unknown]
  - Hospitalisation [Unknown]

NARRATIVE: CASE EVENT DATE: 2018
